FAERS Safety Report 4430695-8 (Version None)
Quarter: 2004Q3

REPORT INFORMATION
  Report Type: 
  Country: None (occurrence: None)
  Receive Date: 20040721
  Receipt Date: 20040223
  Transmission Date: 20050211
  Serious: Yes (Life-Threatening, Other)
  Sender: FDA-Public Use
  Company Number: WAES 0402USA01691

PATIENT
  Age: 52 Year
  Sex: Female

DRUGS (6)
  1. VIOXX [Suspect]
     Indication: ARTHRALGIA
     Dosage: 25 MG/DAILY/PO
     Route: 048
     Dates: start: 20040217, end: 20040221
  2. VIOXX [Suspect]
     Indication: BACK PAIN
     Dosage: 25 MG/DAILY/PO
     Route: 048
     Dates: start: 20040217, end: 20040221
  3. LIDODERM [Concomitant]
  4. PREMARIN [Concomitant]
  5. SKELAXIN [Concomitant]
  6. ZETIA [Concomitant]

REACTIONS (1)
  - ANAPHYLACTIC REACTION [None]
